FAERS Safety Report 4750154-2 (Version None)
Quarter: 2005Q3

REPORT INFORMATION
  Report Type: 
  Country: None (occurrence: None)
  Receive Date: 20050819
  Receipt Date: 20050810
  Transmission Date: 20060218
  Serious: Yes (Other)
  Sender: FDA-Public Use
  Company Number: 2005-04-1819

PATIENT
  Age: 40 Year
  Sex: Female
  Weight: 79.3795 kg

DRUGS (46)
  1. REBETOL [Suspect]
     Indication: HEPATITIS C
     Dosage: ORAL
     Route: 048
     Dates: start: 20000701, end: 20030101
  2. INTRON A [Suspect]
     Indication: HEPATITIS C
     Dates: start: 20000701, end: 20030101
  3. PAXIL [Concomitant]
  4. ALBUTEROL [Concomitant]
  5. FLOVENT [Concomitant]
  6. AMBIEN [Concomitant]
  7. CLONAZEPAM [Concomitant]
  8. EFFEXOR XR [Concomitant]
  9. UNSPECIFIED THERAPEUTIC AGENT CREAM LAC-HYDRIN12% [Concomitant]
  10. LORAZEPAM [Concomitant]
  11. HYDROCHLOROTHIAZIDE [Concomitant]
  12. METHYLPREDNISOLONE [Concomitant]
  13. METRONIDAZOLE [Concomitant]
  14. ULTRAM [Concomitant]
  15. CIPROFLOXACIN HCL [Concomitant]
  16. IBUPROFEN [Concomitant]
  17. ALBUTEROL [Concomitant]
  18. DETROL LA (TOLTERODINE TARTRATE) [Concomitant]
  19. AEROBID [Concomitant]
  20. NULYTERLY (MACROGOL/ELECTROLYTES) [Concomitant]
  21. ACETAMINOPHEN W/ CODEINE [Concomitant]
  22. ZOLOFT [Concomitant]
  23. PREMPHASE 14/14 [Concomitant]
  24. AZMACORT [Concomitant]
  25. PROTONIX [Concomitant]
  26. PREVACID [Concomitant]
  27. METHIMAZOLE [Concomitant]
  28. TOPROL-XL [Concomitant]
  29. CELEBREX [Concomitant]
  30. UNITHROID (LEVOTHYROXINE SODIUM) [Concomitant]
  31. FLUOXETINE [Concomitant]
  32. PREDNISONE TAB [Concomitant]
  33. NEXIUM [Concomitant]
  34. ADVAIR (SALMETEROL/FLUTICASONE) [Concomitant]
  35. REMERON [Concomitant]
  36. THEO-24 [Concomitant]
  37. SEREVENT [Concomitant]
  38. AMOXICILLIN [Concomitant]
  39. TEQUIN [Concomitant]
  40. TRAMADOL HCL [Concomitant]
  41. PROMETHAZINE [Concomitant]
  42. CLARITIN [Concomitant]
  43. RANITIDINE HCL [Concomitant]
  44. COMBIPATCH (ESTRADIOL/NORETHINDRONE) [Concomitant]
  45. ELAVIL [Concomitant]
  46. PHAZYME [Concomitant]

REACTIONS (42)
  - ABDOMINAL DISTENSION [None]
  - ABDOMINAL PAIN [None]
  - ALOPECIA [None]
  - AMENORRHOEA [None]
  - ANAEMIA [None]
  - ANXIETY [None]
  - ASTHENIA [None]
  - ASTHMA [None]
  - BACK PAIN [None]
  - BLOOD THYROID STIMULATING HORMONE DECREASED [None]
  - BONE PAIN [None]
  - BREATH ODOUR [None]
  - BRONCHITIS CHRONIC [None]
  - CERVICITIS [None]
  - CHEST PAIN [None]
  - CONDITION AGGRAVATED [None]
  - CONFUSIONAL STATE [None]
  - CONSTIPATION [None]
  - COUGH [None]
  - DEPRESSION [None]
  - DIZZINESS [None]
  - DRY THROAT [None]
  - DYSPEPSIA [None]
  - DYSPNOEA [None]
  - EYE INFECTION [None]
  - GASTROENTERITIS [None]
  - GASTROOESOPHAGEAL REFLUX DISEASE [None]
  - HYPOTHYROIDISM [None]
  - INCREASED UPPER AIRWAY SECRETION [None]
  - INSOMNIA [None]
  - LARYNGITIS [None]
  - MENOPAUSE [None]
  - NAUSEA [None]
  - NERVOUSNESS [None]
  - OVARIAN CYST [None]
  - PAIN [None]
  - PANIC ATTACK [None]
  - PHARYNGEAL ERYTHEMA [None]
  - PHARYNGOLARYNGEAL PAIN [None]
  - RENAL DISORDER [None]
  - RHINITIS ALLERGIC [None]
  - UPPER RESPIRATORY TRACT INFECTION [None]
